FAERS Safety Report 8346580-5 (Version None)
Quarter: 2012Q2

REPORT INFORMATION
  Report Type: 
  Country: None (occurrence: None)
  Receive Date: 20120509
  Receipt Date: 20120502
  Transmission Date: 20120825
  Serious: Yes (Other)
  Sender: FDA-Public Use
  Company Number: PHEH2012US009452

PATIENT
  Age: 71 Year
  Sex: Male

DRUGS (2)
  1. GLEEVEC [Suspect]
     Indication: SOFT TISSUE NEOPLASM
     Dosage: 400 MG, DAILY
     Route: 048
     Dates: start: 20120202, end: 20120502
  2. AMIODARONE HCL [Concomitant]

REACTIONS (1)
  - PSYCHOTIC DISORDER [None]
